FAERS Safety Report 26025947 (Version 1)
Quarter: 2025Q4

REPORT INFORMATION
  Report Type: Spontaneous
  Country: GB (occurrence: GB)
  Receive Date: 20251111
  Receipt Date: 20251111
  Transmission Date: 20260118
  Serious: Yes (Other)
  Sender: MYLAN
  Company Number: GB-MYLANLABS-2025M1095167

PATIENT
  Age: 7 Decade
  Sex: Male

DRUGS (60)
  1. PREGABALIN [Suspect]
     Active Substance: PREGABALIN
     Indication: Neuralgia
     Dosage: UNK
  2. PREGABALIN [Suspect]
     Active Substance: PREGABALIN
     Dosage: UNK
     Route: 065
  3. PREGABALIN [Suspect]
     Active Substance: PREGABALIN
     Dosage: UNK
     Route: 065
  4. PREGABALIN [Suspect]
     Active Substance: PREGABALIN
     Dosage: UNK
  5. OXYCODONE [Suspect]
     Active Substance: OXYCODONE
     Indication: Fracture pain
     Dosage: 30 MILLIGRAM, BID, MODIFIED RELEASE
  6. OXYCODONE [Suspect]
     Active Substance: OXYCODONE
     Indication: Hip fracture
     Dosage: 30 MILLIGRAM, BID, MODIFIED RELEASE
  7. OXYCODONE [Suspect]
     Active Substance: OXYCODONE
     Dosage: 30 MILLIGRAM, BID, MODIFIED RELEASE
     Route: 048
  8. OXYCODONE [Suspect]
     Active Substance: OXYCODONE
     Dosage: 30 MILLIGRAM, BID, MODIFIED RELEASE
     Route: 048
  9. OXYCODONE [Suspect]
     Active Substance: OXYCODONE
     Dosage: 80 MILLIGRAM, BID, MODIFIED RELEASE
  10. OXYCODONE [Suspect]
     Active Substance: OXYCODONE
     Dosage: 80 MILLIGRAM, BID, MODIFIED RELEASE
  11. OXYCODONE [Suspect]
     Active Substance: OXYCODONE
     Dosage: 80 MILLIGRAM, BID, MODIFIED RELEASE
     Route: 048
  12. OXYCODONE [Suspect]
     Active Substance: OXYCODONE
     Dosage: 80 MILLIGRAM, BID, MODIFIED RELEASE
     Route: 048
  13. OXYCODONE [Suspect]
     Active Substance: OXYCODONE
     Dosage: DOSE REDUCED
  14. OXYCODONE [Suspect]
     Active Substance: OXYCODONE
     Dosage: DOSE REDUCED
     Route: 048
  15. OXYCODONE [Suspect]
     Active Substance: OXYCODONE
     Dosage: DOSE REDUCED
  16. OXYCODONE [Suspect]
     Active Substance: OXYCODONE
     Dosage: DOSE REDUCED
     Route: 048
  17. OXYCODONE [Suspect]
     Active Substance: OXYCODONE
     Indication: Hip fracture
     Dosage: 20 MILLIGRAM, IMMEDIATE RELEASE STATS
  18. OXYCODONE [Suspect]
     Active Substance: OXYCODONE
     Indication: Fracture pain
     Dosage: 20 MILLIGRAM, IMMEDIATE RELEASE STATS
  19. OXYCODONE [Suspect]
     Active Substance: OXYCODONE
     Dosage: 20 MILLIGRAM, IMMEDIATE RELEASE STATS
     Route: 065
  20. OXYCODONE [Suspect]
     Active Substance: OXYCODONE
     Dosage: 20 MILLIGRAM, IMMEDIATE RELEASE STATS
     Route: 065
  21. OXYCODONE [Suspect]
     Active Substance: OXYCODONE
     Dosage: UNK, DOSE REDUCED
  22. OXYCODONE [Suspect]
     Active Substance: OXYCODONE
     Dosage: UNK, DOSE REDUCED
  23. OXYCODONE [Suspect]
     Active Substance: OXYCODONE
     Dosage: UNK, DOSE REDUCED
     Route: 065
  24. OXYCODONE [Suspect]
     Active Substance: OXYCODONE
     Dosage: UNK, DOSE REDUCED
     Route: 065
  25. DULOXETINE [Suspect]
     Active Substance: DULOXETINE
     Indication: Neuralgia
     Dosage: 60 MILLIGRAM, QD
  26. DULOXETINE [Suspect]
     Active Substance: DULOXETINE
     Dosage: 60 MILLIGRAM, QD
     Route: 048
  27. DULOXETINE [Suspect]
     Active Substance: DULOXETINE
     Dosage: 60 MILLIGRAM, QD
     Route: 048
  28. DULOXETINE [Suspect]
     Active Substance: DULOXETINE
     Dosage: 60 MILLIGRAM, QD
  29. FENTANYL [Suspect]
     Active Substance: FENTANYL
     Indication: Hip fracture
     Dosage: UNK, STATS
  30. FENTANYL [Suspect]
     Active Substance: FENTANYL
     Indication: Fracture pain
     Dosage: UNK, STATS
     Route: 065
  31. FENTANYL [Suspect]
     Active Substance: FENTANYL
     Dosage: UNK, STATS
     Route: 065
  32. FENTANYL [Suspect]
     Active Substance: FENTANYL
     Dosage: UNK, STATS
  33. MORPHINE [Suspect]
     Active Substance: MORPHINE
     Indication: Hip fracture
     Dosage: 300-340 MG, QD
  34. MORPHINE [Suspect]
     Active Substance: MORPHINE
     Indication: Fracture pain
     Dosage: 300-340 MG, QD
     Route: 048
  35. MORPHINE [Suspect]
     Active Substance: MORPHINE
     Dosage: 300-340 MG, QD
     Route: 048
  36. MORPHINE [Suspect]
     Active Substance: MORPHINE
     Dosage: 300-340 MG, QD
  37. ALFENTANIL [Suspect]
     Active Substance: ALFENTANIL
     Indication: Hip fracture
     Dosage: 4 MILLIGRAM,INFUSION
     Route: 058
  38. ALFENTANIL [Suspect]
     Active Substance: ALFENTANIL
     Indication: Fracture pain
     Dosage: 4 MILLIGRAM,INFUSION
  39. ALFENTANIL [Suspect]
     Active Substance: ALFENTANIL
     Dosage: 4 MILLIGRAM,INFUSION
  40. ALFENTANIL [Suspect]
     Active Substance: ALFENTANIL
     Dosage: 4 MILLIGRAM,INFUSION
     Route: 058
  41. ALFENTANIL [Suspect]
     Active Substance: ALFENTANIL
     Dosage: 8 MILLIGRAM, INFUSION
     Route: 058
  42. ALFENTANIL [Suspect]
     Active Substance: ALFENTANIL
     Dosage: 8 MILLIGRAM, INFUSION
  43. ALFENTANIL [Suspect]
     Active Substance: ALFENTANIL
     Dosage: 8 MILLIGRAM, INFUSION
  44. ALFENTANIL [Suspect]
     Active Substance: ALFENTANIL
     Dosage: 8 MILLIGRAM, INFUSION
     Route: 058
  45. ALFENTANIL [Suspect]
     Active Substance: ALFENTANIL
     Dosage: 10 MILLIGRAM, INFUSION
  46. ALFENTANIL [Suspect]
     Active Substance: ALFENTANIL
     Dosage: 10 MILLIGRAM, INFUSION
  47. ALFENTANIL [Suspect]
     Active Substance: ALFENTANIL
     Dosage: 10 MILLIGRAM, INFUSION
     Route: 058
  48. ALFENTANIL [Suspect]
     Active Substance: ALFENTANIL
     Dosage: 10 MILLIGRAM, INFUSION
     Route: 058
  49. ALFENTANIL [Suspect]
     Active Substance: ALFENTANIL
     Dosage: 4 MILLIGRAM, INFUSION
  50. ALFENTANIL [Suspect]
     Active Substance: ALFENTANIL
     Dosage: 4 MILLIGRAM, INFUSION
  51. ALFENTANIL [Suspect]
     Active Substance: ALFENTANIL
     Dosage: 4 MILLIGRAM, INFUSION
     Route: 058
  52. ALFENTANIL [Suspect]
     Active Substance: ALFENTANIL
     Dosage: 4 MILLIGRAM, INFUSION
     Route: 058
  53. ACETAMINOPHEN [Suspect]
     Active Substance: ACETAMINOPHEN
     Indication: Neuralgia
     Dosage: 1 GRAM, FOUR TIMES A DAY
  54. ACETAMINOPHEN [Suspect]
     Active Substance: ACETAMINOPHEN
     Dosage: 1 GRAM, FOUR TIMES A DAY
     Route: 048
  55. ACETAMINOPHEN [Suspect]
     Active Substance: ACETAMINOPHEN
     Dosage: 1 GRAM, FOUR TIMES A DAY
     Route: 048
  56. ACETAMINOPHEN [Suspect]
     Active Substance: ACETAMINOPHEN
     Dosage: 1 GRAM, FOUR TIMES A DAY
  57. MIDAZOLAM [Suspect]
     Active Substance: MIDAZOLAM
     Indication: Neuralgia
     Dosage: 5 MILLIGRAM
  58. MIDAZOLAM [Suspect]
     Active Substance: MIDAZOLAM
     Dosage: 5 MILLIGRAM
     Route: 065
  59. MIDAZOLAM [Suspect]
     Active Substance: MIDAZOLAM
     Dosage: 5 MILLIGRAM
     Route: 065
  60. MIDAZOLAM [Suspect]
     Active Substance: MIDAZOLAM
     Dosage: 5 MILLIGRAM

REACTIONS (5)
  - Hallucination [Recovering/Resolving]
  - Myoclonus [Recovering/Resolving]
  - Confusional state [Recovering/Resolving]
  - Drug intolerance [Unknown]
  - Drug ineffective [Unknown]
